FAERS Safety Report 13615820 (Version 1)
Quarter: 2017Q2

REPORT INFORMATION
  Report Type: Report from Study
  Country: US (occurrence: US)
  Receive Date: 20170606
  Receipt Date: 20170606
  Transmission Date: 20170830
  Serious: Yes (Life-Threatening)
  Sender: FDA-Public Use
  Company Number: US-BION-006371

PATIENT
  Age: 19 Year
  Sex: Male

DRUGS (3)
  1. CHLORPHENAMINE [Suspect]
     Active Substance: CHLORPHENIRAMINE MALEATE
  2. PARACETAMOL [Suspect]
     Active Substance: ACETAMINOPHEN
  3. LOPERAMIDE UNKNOWN PRODUCT [Suspect]
     Active Substance: LOPERAMIDE

REACTIONS (7)
  - Coma [Unknown]
  - Lethargy [Unknown]
  - Respiratory depression [Unknown]
  - Drug use disorder [Not Recovered/Not Resolved]
  - Hypertension [Unknown]
  - Tachycardia [Unknown]
  - Miosis [Unknown]
